FAERS Safety Report 13162370 (Version 1)
Quarter: 2017Q1

REPORT INFORMATION
  Report Type: Spontaneous
  Country: US (occurrence: US)
  Receive Date: 20170127
  Receipt Date: 20170127
  Transmission Date: 20170428
  Serious: Yes (Other)
  Sender: FDA-Public Use
  Company Number: None

PATIENT
  Age: 65 Year
  Sex: Female
  Weight: 56.25 kg

DRUGS (10)
  1. APRISO [Suspect]
     Active Substance: MESALAMINE
     Indication: COLITIS MICROSCOPIC
     Dosage: ?          QUANTITY:4 CAPSULE(S);?
     Route: 048
     Dates: start: 20161219, end: 20170116
  2. MULTI [Concomitant]
  3. CALCIUM [Concomitant]
     Active Substance: CALCIUM
  4. OXYGEN. [Concomitant]
     Active Substance: OXYGEN
  5. INHALERS [Concomitant]
     Active Substance: UNSPECIFIED INGREDIENT
  6. ZINC. [Concomitant]
     Active Substance: ZINC
  7. VITAMIN C [Concomitant]
     Active Substance: ASCORBIC ACID
  8. TRAZODONE [Concomitant]
     Active Substance: TRAZODONE HYDROCHLORIDE
  9. POTASSIUM [Concomitant]
     Active Substance: POTASSIUM
  10. CLONAZEPAM. [Concomitant]
     Active Substance: CLONAZEPAM

REACTIONS (4)
  - Pyrexia [None]
  - Chills [None]
  - Malaise [None]
  - Abdominal pain [None]

NARRATIVE: CASE EVENT DATE: 20170102
